FAERS Safety Report 19509558 (Version 1)
Quarter: 2021Q3

REPORT INFORMATION
  Report Type: Spontaneous
  Country: CA (occurrence: CA)
  Receive Date: 20210708
  Receipt Date: 20210708
  Transmission Date: 20211014
  Serious: Yes (Death)
  Sender: FDA-Public Use
  Company Number: NVSC2021CA152256

PATIENT
  Age: 53 Year
  Sex: Male
  Weight: 62 kg

DRUGS (1)
  1. KYMRIAH [Suspect]
     Active Substance: TISAGENLECLEUCEL
     Indication: DOUBLE HIT LYMPHOMA
     Dosage: UNK
     Route: 042

REACTIONS (2)
  - Neurotoxicity [Fatal]
  - Cytokine release syndrome [Fatal]
